FAERS Safety Report 7921632-X (Version None)
Quarter: 2011Q4

REPORT INFORMATION
  Report Type: 
  Country: None (occurrence: None)
  Receive Date: 20111117
  Receipt Date: 20111110
  Transmission Date: 20120403
  Serious: Yes (Hospitalization, Other)
  Sender: FDA-Public Use
  Company Number: IE-B.I. PHARMACEUTICALS,INC./RIDGEFIELD-2011-UK-01161UK

PATIENT
  Sex: Female
  Weight: 92 kg

DRUGS (8)
  1. PRADAXA [Suspect]
     Indication: THROMBOSIS PROPHYLAXIS
     Dosage: 220 MG
     Route: 048
     Dates: start: 20111010, end: 20111014
  2. TEVELEN PLUS [Concomitant]
     Indication: HYPERTENSION
     Dosage: 600/12.5 (UNITS NOT SPECIFIED)
     Route: 048
  3. PANTOPRAZOLE [Concomitant]
  4. ATENOMEL [Concomitant]
     Indication: HYPERTENSION
     Dosage: 100 MG
     Route: 048
  5. LERCANIDIPINE [Concomitant]
     Indication: HYPERTENSION
     Dosage: 10 MG
     Route: 048
  6. OXYCONTIN [Concomitant]
     Indication: ANALGESIC THERAPY
     Dosage: 20 MG
     Route: 048
     Dates: start: 20111010, end: 20111014
  7. ACETAMINOPHEN [Concomitant]
     Indication: ANALGESIC THERAPY
     Dosage: 4 G
     Route: 048
  8. DICLOFENAC SODIUM [Suspect]
     Indication: ANALGESIC THERAPY
     Dosage: 150 MG
     Route: 048
     Dates: start: 20111010, end: 20111014

REACTIONS (1)
  - RECTAL HAEMORRHAGE [None]
